FAERS Safety Report 9503662 (Version 8)
Quarter: 2014Q2

REPORT INFORMATION
  Report Type: Spontaneous
  Country: GB (occurrence: GB)
  Receive Date: 20130906
  Receipt Date: 20140602
  Transmission Date: 20141212
  Serious: Yes (Life-Threatening, Other)
  Sender: FDA-Public Use
  Company Number: PHHY2013GB078807

PATIENT
  Age: 41 Year
  Sex: Male

DRUGS (14)
  1. DOXORUBICIN [Suspect]
     Indication: BURKITT^S LYMPHOMA
     Route: 042
     Dates: start: 20130610
  2. METHOTREXATE [Suspect]
     Indication: BURKITT^S LYMPHOMA
     Dates: start: 201306
  3. METHOTREXATE [Suspect]
     Route: 065
  4. VINCRISTINE [Suspect]
     Indication: BURKITT^S LYMPHOMA
     Dates: start: 20130610
  5. MABTHERA [Suspect]
     Indication: BURKITT^S LYMPHOMA
     Dosage: 700 MG, UNK
     Route: 048
  6. MABTHERA [Suspect]
     Dosage: 700 MG, UNK
     Route: 048
     Dates: start: 20130618
  7. ZAPONEX [Suspect]
     Indication: PRODUCT USED FOR UNKNOWN INDICATION
     Route: 048
  8. ZAPONEX [Suspect]
     Route: 048
     Dates: start: 20100618
  9. CYCLOPHOSPHAMIDE [Suspect]
     Indication: BURKITT^S LYMPHOMA
     Dates: start: 20130610
  10. RITUXIMAB [Suspect]
     Indication: BURKITT^S LYMPHOMA
     Route: 048
     Dates: start: 20130610
  11. FILGRASTIM [Concomitant]
     Route: 065
     Dates: start: 20130623
  12. GRANISETRON [Concomitant]
     Indication: BURKITT^S LYMPHOMA
     Dosage: 2 MG
     Route: 048
     Dates: start: 20130611
  13. SODIUM BICARBONATE [Concomitant]
     Indication: BURKITT^S LYMPHOMA
     Dosage: 100 MMOL
     Dates: start: 20130618
  14. SODIUM BICARBONATE [Concomitant]
     Route: 065
     Dates: start: 20130618

REACTIONS (12)
  - White blood cell count increased [Recovered/Resolved]
  - Neutrophil count increased [Recovered/Resolved]
  - White blood cell count decreased [Recovered/Resolved]
  - Neutropenia [Recovered/Resolved]
  - Burkitt^s lymphoma [Not Recovered/Not Resolved]
  - Agranulocytosis [Recovered/Resolved]
  - Neutrophil count decreased [Recovered/Resolved]
  - Leukopenia [Recovered/Resolved]
  - Thrombocytopenia [Recovered/Resolved]
  - Platelet count decreased [Recovered/Resolved]
  - Off label use [Not Recovered/Not Resolved]
  - Eosinophil count increased [Recovered/Resolved]
